FAERS Safety Report 6759787-5 (Version None)
Quarter: 2010Q2

REPORT INFORMATION
  Report Type: 
  Country: None (occurrence: None)
  Receive Date: 20100608
  Receipt Date: 20100602
  Transmission Date: 20101027
  Serious: Yes (Hospitalization)
  Sender: FDA-Public Use
  Company Number: US-JNJFOC-20100601434

PATIENT
  Sex: Male
  Weight: 98.88 kg

DRUGS (1)
  1. DURAGESIC-100 [Suspect]
     Indication: BACK PAIN
     Route: 061

REACTIONS (3)
  - APPLICATION SITE REACTION [None]
  - ATRIAL FIBRILLATION [None]
  - CARDIAC PACEMAKER REPLACEMENT [None]
